FAERS Safety Report 19919875 (Version 1)
Quarter: 2021Q4

REPORT INFORMATION
  Report Type: Spontaneous
  Country: GB (occurrence: GB)
  Receive Date: 20211005
  Receipt Date: 20211005
  Transmission Date: 20220303
  Serious: Yes (Other)
  Sender: FDA-Public Use
  Company Number: GB-NOVARTISPH-NVSC2021GB213725

PATIENT
  Sex: Male

DRUGS (1)
  1. FILGRASTIM [Suspect]
     Active Substance: FILGRASTIM
     Indication: Product used for unknown indication
     Dosage: 780 UG
     Route: 065
     Dates: start: 20210917

REACTIONS (7)
  - Lower respiratory tract infection [Unknown]
  - Cough [Unknown]
  - Musculoskeletal chest pain [Unknown]
  - Sputum discoloured [Unknown]
  - Pelvic pain [Unknown]
  - Influenza like illness [Unknown]
  - Nasopharyngitis [Unknown]
